FAERS Safety Report 5698786-1 (Version None)
Quarter: 2008Q2

REPORT INFORMATION
  Report Type: 
  Country: None (occurrence: None)
  Receive Date: 20080404
  Receipt Date: 20080402
  Transmission Date: 20081010
  Serious: Yes (Other)
  Sender: FDA-Public Use
  Company Number: 2007SP025188

PATIENT
  Age: 54 Year
  Sex: Male
  Weight: 68 kg

DRUGS (3)
  1. PEG-INTRON [Suspect]
     Indication: HEPATITIS C
     Dosage: 100 MCG; QW; SC
     Route: 058
     Dates: start: 20060523, end: 20061017
  2. REBETOL [Suspect]
     Indication: HEPATITIS C
     Dosage: 800 MG; QD; PO
     Route: 048
     Dates: start: 20060523, end: 20061017
  3. DEPAS [Concomitant]

REACTIONS (1)
  - AORTIC ANEURYSM [None]
